FAERS Safety Report 25136537 (Version 1)
Quarter: 2025Q1

REPORT INFORMATION
  Report Type: Report from Study
  Country: US (occurrence: US)
  Receive Date: 20250328
  Receipt Date: 20250328
  Transmission Date: 20250409
  Serious: Yes (Death, Other)
  Sender: RECKITT BENCKISER
  Company Number: US-Indivior Limited-INDV-159132-2025

PATIENT

DRUGS (9)
  1. SUBLOCADE [Suspect]
     Active Substance: BUPRENORPHINE
     Indication: Drug dependence
     Dosage: 100 MILLIGRAM, QMO
     Route: 065
     Dates: start: 20210909
  2. SUBLOCADE [Suspect]
     Active Substance: BUPRENORPHINE
     Dosage: 100 MILLIGRAM, QMO
     Route: 058
     Dates: start: 20250122
  3. SUBLOCADE [Suspect]
     Active Substance: BUPRENORPHINE
     Indication: Drug dependence
     Dosage: 300 MILLIGRAM, QMO
     Route: 065
     Dates: start: 20210728
  4. SUBOXONE [Suspect]
     Active Substance: BUPRENORPHINE HYDROCHLORIDE\NALOXONE HYDROCHLORIDE
     Indication: Drug dependence
     Route: 065
     Dates: start: 20190926, end: 20200121
  5. SUBOXONE [Suspect]
     Active Substance: BUPRENORPHINE HYDROCHLORIDE\NALOXONE HYDROCHLORIDE
     Dosage: 8 MILLIGRAM, QD
     Route: 060
     Dates: start: 20210721, end: 20210811
  6. NICOTINE [Concomitant]
     Active Substance: NICOTINE
     Indication: Nicotine dependence
     Route: 065
     Dates: start: 20241125, end: 20250122
  7. METOCLOPRAMIDE HYDROCHLORIDE [Concomitant]
     Active Substance: METOCLOPRAMIDE HYDROCHLORIDE
     Indication: Impaired gastric emptying
     Route: 065
     Dates: start: 20230823, end: 20240415
  8. KLOR-CON M10 [Concomitant]
     Active Substance: POTASSIUM CHLORIDE
     Indication: Hypokalaemia
     Route: 065
     Dates: start: 20210908, end: 20240820
  9. POTASSIUM [Concomitant]
     Active Substance: POTASSIUM
     Indication: Hypokalaemia
     Route: 065
     Dates: start: 20200121, end: 20211103

REACTIONS (15)
  - Acute respiratory failure [Fatal]
  - Diabetic nephropathy [Not Recovered/Not Resolved]
  - Hypertensive heart disease [Not Recovered/Not Resolved]
  - Clavicle fracture [Recovered/Resolved]
  - Seizure [Recovered/Resolved]
  - Injury [Unknown]
  - Fall [Recovered/Resolved]
  - Localised oedema [Not Recovered/Not Resolved]
  - Impetigo [Recovered/Resolved]
  - Cellulitis [Recovered/Resolved]
  - Gastrooesophageal reflux disease [Not Recovered/Not Resolved]
  - Tinea pedis [Recovered/Resolved]
  - Erectile dysfunction [Not Recovered/Not Resolved]
  - Drug abuse [Unknown]
  - Inappropriate schedule of product administration [Recovered/Resolved]

NARRATIVE: CASE EVENT DATE: 20200121
